FAERS Safety Report 5605616-2 (Version None)
Quarter: 2008Q1

REPORT INFORMATION
  Report Type: 
  Country: None (occurrence: None)
  Receive Date: 20080125
  Receipt Date: 20080125
  Transmission Date: 20080703
  Serious: Yes (Life-Threatening, Other)
  Sender: FDA-Public Use
  Company Number: None

PATIENT
  Sex: Female
  Weight: 90.7194 kg

DRUGS (3)
  1. CHANTIX [Suspect]
     Indication: CHRONIC OBSTRUCTIVE PULMONARY DISEASE
     Dosage: 2X/DAY PO
     Route: 048
     Dates: start: 20080111, end: 20080118
  2. CHANTIX [Suspect]
     Indication: SMOKER
     Dosage: 2X/DAY PO
     Route: 048
     Dates: start: 20080111, end: 20080118
  3. ALBUTERAL [Concomitant]

REACTIONS (16)
  - ABNORMAL BEHAVIOUR [None]
  - AGGRESSION [None]
  - ALCOHOL USE [None]
  - AMNESIA [None]
  - ANGER [None]
  - ANXIETY [None]
  - APATHY [None]
  - CONVERSION DISORDER [None]
  - CRYING [None]
  - DISSOCIATION [None]
  - FEELING ABNORMAL [None]
  - HEADACHE [None]
  - IRRITABILITY [None]
  - NEGLECT OF PERSONAL APPEARANCE [None]
  - SUICIDAL IDEATION [None]
  - TREMOR [None]
